FAERS Safety Report 4903046-X (Version None)
Quarter: 2006Q1

REPORT INFORMATION
  Report Type: 
  Country: None (occurrence: None)
  Receive Date: 20060207
  Receipt Date: 20060112
  Transmission Date: 20060701
  Serious: Yes (Life-Threatening)
  Sender: FDA-Public Use
  Company Number: 2006AP00167

PATIENT
  Age: 30518 Day
  Sex: Male

DRUGS (16)
  1. IRESSA [Suspect]
     Indication: NON-SMALL CELL LUNG CANCER STAGE IV
     Route: 048
     Dates: start: 20051209, end: 20060104
  2. GASTER D [Concomitant]
     Indication: NAUSEA
     Route: 048
     Dates: start: 20051209, end: 20060115
  3. GASTER D [Concomitant]
     Indication: ANOREXIA
     Route: 048
     Dates: start: 20051209, end: 20060115
  4. NOVAMIN [Concomitant]
     Indication: NAUSEA
     Route: 048
     Dates: start: 20051209, end: 20060115
  5. NOVAMIN [Concomitant]
     Indication: ANOREXIA
     Route: 048
     Dates: start: 20051209, end: 20060115
  6. LAC B [Concomitant]
     Indication: NAUSEA
     Route: 048
     Dates: start: 20051209, end: 20060115
  7. LAC B [Concomitant]
     Indication: ANOREXIA
     Route: 048
     Dates: start: 20051209, end: 20060115
  8. BERIZYM [Concomitant]
     Indication: NAUSEA
     Route: 048
     Dates: start: 20051209, end: 20060115
  9. BERIZYM [Concomitant]
     Indication: ANOREXIA
     Route: 048
     Dates: start: 20051209, end: 20060115
  10. SERENACE [Concomitant]
     Indication: NAUSEA
     Route: 048
     Dates: start: 20051219, end: 20060102
  11. SERENACE [Concomitant]
     Indication: ANOREXIA
     Route: 048
     Dates: start: 20051219, end: 20060102
  12. GRENOL [Concomitant]
     Indication: METASTASES TO CENTRAL NERVOUS SYSTEM
     Dates: start: 20051119, end: 20060115
  13. RINDERON [Concomitant]
     Indication: METASTASES TO CENTRAL NERVOUS SYSTEM
     Dates: start: 20051120, end: 20060115
  14. VITAMIN D AND PREPARATIONS [Concomitant]
     Indication: MEDICAL DIET
     Dates: start: 20051206, end: 20060110
  15. AMINOFLUID [Concomitant]
     Indication: NUTRITIONAL SUPPORT
     Dates: start: 20051222, end: 20060115
  16. SODIUM CHLORIDE [Concomitant]
     Indication: HYPONATRAEMIA
     Route: 048
     Dates: start: 20051227, end: 20060115

REACTIONS (3)
  - BRAIN HERNIATION [None]
  - METASTASES TO CENTRAL NERVOUS SYSTEM [None]
  - PNEUMONIA FUNGAL [None]
